FAERS Safety Report 7644934-3 (Version None)
Quarter: 2011Q3

REPORT INFORMATION
  Report Type: 
  Country: None (occurrence: None)
  Receive Date: 20110729
  Receipt Date: 20110712
  Transmission Date: 20111222
  Serious: Yes (Hospitalization)
  Sender: FDA-Public Use
  Company Number: US-GLAXOSMITHKLINE-A0870166A

PATIENT
  Age: 53 Year
  Sex: Male
  Weight: 134.1 kg

DRUGS (10)
  1. INSULIN [Concomitant]
  2. ALPRAZOLAM [Concomitant]
  3. TRAZODONE HCL [Concomitant]
  4. NORTRIPTYLINE HCL [Concomitant]
  5. NIFEDIPINE [Concomitant]
  6. LOVASTATIN [Concomitant]
  7. LISINOPRIL [Concomitant]
  8. ALBUTEROL SULFATE AND IPRATROPIUM BROMIDE [Concomitant]
  9. AVANDIA [Suspect]
     Indication: DIABETES MELLITUS
     Dosage: 2MG TWICE PER DAY
     Route: 048
     Dates: start: 20050701, end: 20080101
  10. METFORMIN HCL [Concomitant]

REACTIONS (3)
  - CEREBROVASCULAR ACCIDENT [None]
  - CARDIAC FAILURE CONGESTIVE [None]
  - TRANSIENT ISCHAEMIC ATTACK [None]
